FAERS Safety Report 18443526 (Version 1)
Quarter: 2020Q4

REPORT INFORMATION
  Report Type: Report from Study
  Country: JP (occurrence: JP)
  Receive Date: 20201029
  Receipt Date: 20201029
  Transmission Date: 20210114
  Serious: Yes (Hospitalization)
  Sender: FDA-Public Use
  Company Number: JP-TEVA-2020-JP-1842189

PATIENT
  Age: 62 Year
  Sex: Female

DRUGS (11)
  1. ALBUMIN [Concomitant]
     Active Substance: ALBUMIN HUMAN
     Indication: INTERSTITIAL LUNG DISEASE
  2. ALBUMIN [Concomitant]
     Active Substance: ALBUMIN HUMAN
     Indication: DERMATOMYOSITIS
     Dosage: ADMINISTERED VIA DOUBLE-LUMEN CATHETER INSERTED INTO THE FEMORAL VEIN IN TPE FOR REPLACEMENT FLUID
     Route: 065
  3. PREDNISOLONE. [Suspect]
     Active Substance: PREDNISOLONE
     Indication: INTERSTITIAL LUNG DISEASE
  4. METHYLPREDNISOLONE. [Suspect]
     Active Substance: METHYLPREDNISOLONE
     Indication: INTERSTITIAL LUNG DISEASE
  5. CYCLOPHOSPHAMIDE. [Suspect]
     Active Substance: CYCLOPHOSPHAMIDE
     Indication: DERMATOMYOSITIS
     Dosage: PULSE THERAPY; ADMINISTERED EVERY TWO WEEKS DURING THE FIRST SIX TPE SESSIONS, BUT WAS SOMETIMES ...
     Route: 042
  6. CYCLOPHOSPHAMIDE. [Suspect]
     Active Substance: CYCLOPHOSPHAMIDE
     Indication: INTERSTITIAL LUNG DISEASE
  7. METHYLPREDNISOLONE. [Suspect]
     Active Substance: METHYLPREDNISOLONE
     Indication: DERMATOMYOSITIS
     Route: 065
  8. PREDNISOLONE. [Suspect]
     Active Substance: PREDNISOLONE
     Indication: DERMATOMYOSITIS
     Route: 048
  9. TACROLIMUS. [Suspect]
     Active Substance: TACROLIMUS
     Indication: DERMATOMYOSITIS
     Dosage: DOSES ADJUSTED TO MAINTAIN A SERUM TROUGH LEVEL WITHIN 10-12 NG/ML
     Route: 065
  10. TACROLIMUS. [Suspect]
     Active Substance: TACROLIMUS
     Indication: INTERSTITIAL LUNG DISEASE
  11. ALBUMIN [Concomitant]
     Active Substance: ALBUMIN HUMAN
     Indication: FLUID REPLACEMENT

REACTIONS (2)
  - Cytomegalovirus infection reactivation [Unknown]
  - Drug ineffective [Unknown]
